FAERS Safety Report 25978396 (Version 2)
Quarter: 2025Q4

REPORT INFORMATION
  Report Type: Report from Study
  Country: US (occurrence: US)
  Receive Date: 20251030
  Receipt Date: 20251114
  Transmission Date: 20260118
  Serious: No
  Sender: JOHNSON AND JOHNSON
  Company Number: US-JNJFOC-20251015968

PATIENT
  Age: 57 Year

DRUGS (1)
  1. TREMFYA [Suspect]
     Active Substance: GUSELKUMAB
     Indication: Psoriasis
     Dosage: LAST OF TREMFYA WAS 11-AUG-2025
     Dates: start: 202507

REACTIONS (2)
  - Product dose omission issue [Unknown]
  - Liver disorder [Unknown]

NARRATIVE: CASE EVENT DATE: 20251009
